FAERS Safety Report 7833847-X (Version None)
Quarter: 2011Q4

REPORT INFORMATION
  Report Type: 
  Country: None (occurrence: None)
  Receive Date: 20111024
  Receipt Date: 20111017
  Transmission Date: 20120403
  Serious: Yes (Other)
  Sender: FDA-Public Use
  Company Number: JP-GLAXOSMITHKLINE-B0752747A

PATIENT
  Age: 43 Year
  Sex: Male

DRUGS (3)
  1. DEPAKENE [Concomitant]
     Indication: EPILEPSY
     Dosage: 1200MG PER DAY
     Route: 048
  2. LOSARTAN POTASSIUM AND HYDROCHLOROTHIAZIDE [Suspect]
     Indication: HYPERTENSION
     Dosage: 1IUAX PER DAY
     Route: 048
  3. LAMICTAL [Suspect]
     Indication: EPILEPSY
     Dosage: 25MG PER DAY
     Route: 048

REACTIONS (2)
  - HYPOGLYCAEMIA [None]
  - TREMOR [None]
